FAERS Safety Report 7343624-4 (Version None)
Quarter: 2011Q1

REPORT INFORMATION
  Report Type: 
  Country: None (occurrence: None)
  Receive Date: 20110310
  Receipt Date: 20100729
  Transmission Date: 20110831
  Serious: No
  Sender: FDA-Public Use
  Company Number: A0872932A

PATIENT
  Age: 32 Year
  Sex: Male

DRUGS (1)
  1. NICORETTE [Suspect]
     Dates: start: 20100726, end: 20100728

REACTIONS (3)
  - DYSPEPSIA [None]
  - HICCUPS [None]
  - CHEST DISCOMFORT [None]
